FAERS Safety Report 8449452-0 (Version None)
Quarter: 2012Q2

REPORT INFORMATION
  Report Type: 
  Country: None (occurrence: None)
  Receive Date: 20120619
  Receipt Date: 20120614
  Transmission Date: 20120825
  Serious: Yes (Death)
  Sender: FDA-Public Use
  Company Number: FI-ELI_LILLY_AND_COMPANY-FI201205003766

PATIENT
  Sex: Female

DRUGS (8)
  1. METOPROLOL SUCCINATE [Concomitant]
     Dosage: 2 DF, QD
  2. LANTUS [Concomitant]
     Dosage: 1 DF, UNKNOWN
  3. WARFARIN SODIUM [Concomitant]
     Dosage: UNK, UNKNOWN
  4. TEVETEN [Concomitant]
     Dosage: 600 MG, QD
  5. LEVOTHYROXINE SODIUM [Concomitant]
     Dosage: 1 DF, QD
  6. HEXAL [Concomitant]
     Dosage: 1000 MG, TID
  7. DIGOXIN [Concomitant]
     Dosage: 0.25 MG, QD
  8. BYDUREON [Suspect]
     Indication: TYPE 2 DIABETES MELLITUS
     Dosage: 2 MG, WEEKLY (1/W)
     Dates: start: 20120223, end: 20120315

REACTIONS (2)
  - ACUTE MYELOID LEUKAEMIA [None]
  - OFF LABEL USE [None]
